FAERS Safety Report 24714623 (Version 1)
Quarter: 2024Q4

REPORT INFORMATION
  Report Type: Report from Study
  Country: JP (occurrence: JP)
  Receive Date: 20241209
  Receipt Date: 20241209
  Transmission Date: 20250115
  Serious: Yes (Death, Hospitalization, Other)
  Sender: BRISTOL-MYERS SQUIBB COMPANY
  Company Number: JP-CELGENE-JPN-20211007034

PATIENT
  Age: 34 Year
  Sex: Female
  Weight: 47 kg

DRUGS (4)
  1. BREYANZI [Suspect]
     Active Substance: LISOCABTAGENE MARALEUCEL
     Indication: Primary mediastinal large B-cell lymphoma
     Dosage: TOTAL NUMBER OF ADMINISTERED CELLS WAS 100X10^6, TYPE OF ADMINISTERED CELLS: CD4-POSITIVE LYMPHOCYTE
     Route: 041
     Dates: start: 20211015, end: 20211015
  2. PREDONINE [Concomitant]
     Active Substance: PREDNISOLONE
     Indication: Product used for unknown indication
     Dosage: FREQUENCY TEXT: UNKNOWN?UNKNOWN
  3. FLUDARABINE [Concomitant]
     Active Substance: FLUDARABINE PHOSPHATE
     Indication: Primary mediastinal large B-cell lymphoma
     Dosage: TOTAL DOSE WAS 90 MG/M^2
     Dates: start: 20211010
  4. CYCLOPHOSPHAMIDE [Concomitant]
     Active Substance: CYCLOPHOSPHAMIDE
     Indication: Primary mediastinal large B-cell lymphoma
     Dosage: TOTAL DOSE WAS 900 MG/M^2
     Dates: start: 20211010

REACTIONS (10)
  - Cytokine release syndrome [Recovering/Resolving]
  - Jaundice cholestatic [Not Recovered/Not Resolved]
  - White blood cell count decreased [Unknown]
  - Haemoglobin decreased [Unknown]
  - Platelet count decreased [Unknown]
  - Neutrophil count decreased [Unknown]
  - Lymphocyte count decreased [Unknown]
  - Malignant neoplasm progression [Fatal]
  - Respiratory failure [Fatal]
  - Therapy non-responder [Unknown]

NARRATIVE: CASE EVENT DATE: 20211015
